FAERS Safety Report 21326042 (Version 1)
Quarter: 2022Q3

REPORT INFORMATION
  Report Type: Spontaneous
  Country: DE (occurrence: DE)
  Receive Date: 20220913
  Receipt Date: 20220913
  Transmission Date: 20221027
  Serious: Yes (Other)
  Sender: FDA-Public Use
  Company Number: DE-ELI_LILLY_AND_COMPANY-DE202208006964

PATIENT
  Age: 76 Year

DRUGS (3)
  1. DOCETAXEL [Suspect]
     Active Substance: DOCETAXEL
     Indication: Non-small cell lung cancer
     Dosage: 75 MILLIGRAM/SQ. METER, CYCLICAL
     Route: 065
     Dates: start: 20210114
  2. DOCETAXEL [Suspect]
     Active Substance: DOCETAXEL
     Dosage: UNK UNK, CYCLICAL,CYCLICAL (DOSE REDUCTION TO 75% FROM CYCLE 4)
     Route: 065
  3. RAMUCIRUMAB [Suspect]
     Active Substance: RAMUCIRUMAB
     Indication: Non-small cell lung cancer
     Dosage: 10 MILLIGRAM/KILOGRAM, CYCLICAL
     Route: 065
     Dates: start: 20210114, end: 202206

REACTIONS (4)
  - Malignant neoplasm progression [Unknown]
  - Gastroenteritis clostridial [Recovering/Resolving]
  - Colitis [Recovering/Resolving]
  - Therapy partial responder [Unknown]

NARRATIVE: CASE EVENT DATE: 20220501
